FAERS Safety Report 7391982-7 (Version None)
Quarter: 2011Q2

REPORT INFORMATION
  Report Type: 
  Country: None (occurrence: None)
  Receive Date: 20110404
  Receipt Date: 20110323
  Transmission Date: 20111010
  Serious: Yes (Death, Other)
  Sender: FDA-Public Use
  Company Number: US-CELGENEUS-163-21880-11032732

PATIENT
  Sex: Male

DRUGS (10)
  1. QUETIAPINE [Concomitant]
     Route: 065
  2. ADVAIR DISKUS 100/50 [Concomitant]
     Route: 065
  3. SIMVASTATIN [Concomitant]
     Route: 065
  4. SERTRALINE HYDROCHLORIDE [Concomitant]
     Route: 065
  5. ATENOLOL [Concomitant]
     Route: 065
  6. ALLOPURINOL [Concomitant]
     Route: 065
  7. REVLIMID [Suspect]
     Indication: MANTLE CELL LYMPHOMA
     Dosage: 25 MILLIGRAM
     Route: 048
     Dates: start: 20110128, end: 20110217
  8. ASPIRIN [Concomitant]
     Route: 065
  9. RITUXAN [Concomitant]
     Route: 065
  10. FINASTERIDE [Concomitant]
     Route: 065

REACTIONS (2)
  - NEUTROPENIA [None]
  - DEATH [None]
